FAERS Safety Report 6811807-5 (Version None)
Quarter: 2010Q2

REPORT INFORMATION
  Report Type: 
  Country: None (occurrence: None)
  Receive Date: 20100628
  Receipt Date: 20100613
  Transmission Date: 20101027
  Serious: Yes (Other)
  Sender: FDA-Public Use
  Company Number: GB-DEXPHARM-20100853

PATIENT
  Age: 66 Year
  Sex: Female

DRUGS (13)
  1. OMEPRAZOLE [Suspect]
     Dosage: DOSE: 20 MG MILLIGRAM(S) SEP. DOSAGES / INTERVAL: 1 IN 1  DAY ORAL
     Route: 048
     Dates: start: 20050101, end: 20100528
  2. DOCETAXEL [Suspect]
     Indication: BREAST CANCER
     Dosage: INTRAVENOUS
     Route: 042
     Dates: start: 20100415
  3. BENDROFLUMETHIAZIDE [Suspect]
     Indication: HYPERTENSION
     Dosage: 2.5 MG MILLGRAM(S) SEP. DOSAGES / INTERVAL: 1 IN 1 DAY ORAL
     Route: 048
     Dates: start: 20050101, end: 20100528
  4. ASPIRIN [Concomitant]
  5. BETAHISTINE DIHYDROCHLORIDE [Concomitant]
  6. CANDESARTAN CILEXETIL [Concomitant]
  7. CYCLOPHOSPHAMIDE ANHYDROUS [Concomitant]
  8. DEXAMETHASONE [Concomitant]
  9. DOMPERIDONE [Concomitant]
  10. EPIRUBICIN [Concomitant]
  11. GRANISETRON HCL [Concomitant]
  12. METFORMIN HCL [Concomitant]
  13. SIMVASTATIN [Concomitant]

REACTIONS (5)
  - BREAST CANCER [None]
  - DIARRHOEA [None]
  - HYPOCALCAEMIA [None]
  - HYPOMAGNESAEMIA [None]
  - TETANY [None]
